FAERS Safety Report 7734748-8 (Version None)
Quarter: 2011Q3

REPORT INFORMATION
  Report Type: 
  Country: None (occurrence: None)
  Receive Date: 20110907
  Receipt Date: 20110825
  Transmission Date: 20111222
  Serious: Yes (Other)
  Sender: FDA-Public Use
  Company Number: US-BAYER-200829333NA

PATIENT
  Sex: Male
  Weight: 82 kg

DRUGS (52)
  1. MAGNEVIST [Suspect]
     Indication: ANGIOPLASTY
     Dosage: 80 ML, UNK
     Dates: start: 20050315
  2. OMNISCAN [Suspect]
     Indication: ANGIOGRAM
     Dosage: UNK
     Dates: start: 20040504, end: 20040504
  3. MULTIHANCE [Suspect]
     Indication: NUCLEAR MAGNETIC RESONANCE IMAGING
  4. PROHANCE [Suspect]
     Indication: NUCLEAR MAGNETIC RESONANCE IMAGING
     Dosage: 19 ML, UNK
     Dates: start: 20031116
  5. GADOLINIUM IN UNSPECIFIED DRUG [Suspect]
     Dosage: UNK
     Dates: start: 20010904
  6. GADOLINIUM IN UNSPECIFIED DRUG [Suspect]
     Dosage: UNK
     Dates: start: 20040504
  7. GADOLINIUM IN UNSPECIFIED DRUG [Suspect]
     Dosage: UNK
     Dates: start: 20050304
  8. DIOVAN [Concomitant]
  9. STARLIX [Concomitant]
  10. ARANESP [Concomitant]
  11. PREDNISONE [Concomitant]
     Dosage: DAILY DOSE 5 MG
  12. LOPRESSOR [Concomitant]
  13. VISIPAQUE [Suspect]
     Indication: ANGIOPLASTY
     Dosage: 100 ML, UNK
     Dates: start: 20050315
  14. PLAVIX [Concomitant]
     Dosage: DAILY DOSE 75 MG
  15. NEURONTIN [Concomitant]
  16. ALLOPURINOL [Concomitant]
  17. PROGRAF [Concomitant]
     Dosage: 0.5 MG, BID
  18. ASPIRIN [Concomitant]
     Dosage: 81 MG, QD
  19. MAGNEVIST [Suspect]
     Indication: ANGIOGRAM
     Dosage: UNK
     Dates: start: 20050304, end: 20050304
  20. GADOLINIUM IN UNSPECIFIED DRUG [Suspect]
     Indication: NUCLEAR MAGNETIC RESONANCE IMAGING
     Dates: start: 20050304, end: 20050304
  21. ASPIRIN [Concomitant]
  22. CELLCEPT [Concomitant]
     Dosage: DAILY DOSE 500 MG
  23. LIPITOR [Concomitant]
     Dosage: 40 MG, QD
  24. FLOMAX [Concomitant]
  25. AVAPRO [Concomitant]
  26. GADOLINIUM IN UNSPECIFIED DRUG [Suspect]
     Dosage: UNK
     Dates: start: 20001026
  27. GADOLINIUM IN UNSPECIFIED DRUG [Suspect]
     Dosage: UNK
     Dates: start: 20031010
  28. RENAGEL [Concomitant]
  29. JANUVIA [Concomitant]
     Dosage: 100 MG, QD
  30. COZAAR [Concomitant]
     Dosage: 50 MG, QD
  31. RANEXA [Concomitant]
     Dosage: 500 MG, QD
  32. IMDUR [Concomitant]
  33. METOPROLOL [Concomitant]
  34. DILTIAZEM [Concomitant]
  35. GADOLINIUM IN UNSPECIFIED DRUG [Suspect]
     Dosage: UNK
     Dates: start: 20031116
  36. NEPHROVITE [VIT C,VIT H,B5,B12,B9,B3,B6,B2,B1 HCL] [Concomitant]
  37. LASIX [Concomitant]
     Dosage: 40 MG, BID
  38. NOVOLOG MIX 70/30 [Concomitant]
  39. AMBIEN [Concomitant]
  40. DEMADEX [Concomitant]
  41. OMNISCAN [Suspect]
     Indication: NUCLEAR MAGNETIC RESONANCE IMAGING
     Dosage: 20 ML, UNK
     Dates: start: 20030402, end: 20110402
  42. OPTIMARK [Suspect]
     Indication: NUCLEAR MAGNETIC RESONANCE IMAGING
  43. PROHANCE [Suspect]
  44. GADOLINIUM IN UNSPECIFIED DRUG [Suspect]
     Dosage: UNK
     Dates: start: 19901213
  45. GADOLINIUM IN UNSPECIFIED DRUG [Suspect]
     Dosage: UNK
     Dates: start: 20030402
  46. GADOLINIUM IN UNSPECIFIED DRUG [Suspect]
     Dosage: UNK
     Dates: start: 20050315
  47. COREG [Concomitant]
     Dosage: 3.125 MG, BID
  48. GABAPENTIN [Concomitant]
     Dosage: 300 MG, QD
  49. INDERAL [Concomitant]
  50. IRON SUPPLEMENT [Concomitant]
  51. MAGNEVIST [Suspect]
     Indication: NUCLEAR MAGNETIC RESONANCE IMAGING
     Dosage: UNK
     Dates: start: 20040504, end: 20040504
  52. PIOGLITAZONE [Concomitant]
     Dosage: 45 MG, QD

REACTIONS (10)
  - ANXIETY [None]
  - BONE PAIN [None]
  - PAIN [None]
  - MUSCULAR WEAKNESS [None]
  - INJURY [None]
  - NEPHROGENIC SYSTEMIC FIBROSIS [None]
  - EMOTIONAL DISTRESS [None]
  - RENAL FAILURE CHRONIC [None]
  - GENERAL PHYSICAL HEALTH DETERIORATION [None]
  - MOBILITY DECREASED [None]
